FAERS Safety Report 7582584-8 (Version None)
Quarter: 2011Q2

REPORT INFORMATION
  Report Type: 
  Country: None (occurrence: None)
  Receive Date: 20110623
  Receipt Date: 20110608
  Transmission Date: 20111010
  Serious: Yes (Other)
  Sender: FDA-Public Use
  Company Number: LTI2011A00149

PATIENT
  Age: 75 Year
  Sex: Male

DRUGS (7)
  1. NOVONORM (REPAGLINIDE) [Concomitant]
  2. DIAMICRON (GLICLAZIDE) [Concomitant]
  3. GLUCOPHAGE [Concomitant]
  4. ACTOS [Suspect]
     Indication: TYPE 2 DIABETES MELLITUS
     Dosage: 30, 15 MG (30 MG, 1 IN 1 D), ORAL
     Route: 048
     Dates: start: 20101201, end: 20110401
  5. ACTOS [Suspect]
     Indication: TYPE 2 DIABETES MELLITUS
     Dosage: 30, 15 MG (30 MG, 1 IN 1 D), ORAL
     Route: 048
     Dates: start: 20060328, end: 20101201
  6. PERINDOPRIL ERBUMINE [Concomitant]
  7. ASPIRIN [Concomitant]

REACTIONS (1)
  - BLADDER CANCER [None]
